FAERS Safety Report 5212027-0 (Version None)
Quarter: 2007Q1

REPORT INFORMATION
  Report Type: 
  Country: None (occurrence: None)
  Receive Date: 20070117
  Receipt Date: 20070117
  Transmission Date: 20070707
  Serious: Yes (Hospitalization)
  Sender: FDA-Public Use
  Company Number: None

PATIENT
  Age: 66 Year
  Sex: Male
  Weight: 80.3 kg

DRUGS (10)
  1. CARBAMAZEPINE [Suspect]
  2. VALPROIC ACID CAP [Concomitant]
  3. SODIUM CHLORIDE SOLN [Concomitant]
  4. SENNA TAB [Concomitant]
  5. METOPROLOL TARTRATE TAB [Concomitant]
  6. LEVOTHYROXINE TAB [Concomitant]
  7. LUBRICATING OPH OINT [Concomitant]
  8. HYDROCORTISONE [Concomitant]
  9. DIGOXIN [Concomitant]
  10. CLOTRIMAZOLE [Concomitant]

REACTIONS (1)
  - HYPONATRAEMIA [None]
